FAERS Safety Report 6378030-2 (Version None)
Quarter: 2009Q3

REPORT INFORMATION
  Report Type: 
  Country: None (occurrence: None)
  Receive Date: 20090921
  Receipt Date: 20090907
  Transmission Date: 20100115
  Serious: Yes (Life-Threatening, Hospitalization)
  Sender: FDA-Public Use
  Company Number: AE 2009-107

PATIENT
  Age: 60 Year
  Sex: Male

DRUGS (1)
  1. FAZACLO ODT [Suspect]
     Dosage: 200 MG DAILY PO
     Route: 048
     Dates: start: 20080501

REACTIONS (4)
  - CHOKING [None]
  - PULSE ABSENT [None]
  - RESPIRATORY ARREST [None]
  - RESUSCITATION [None]
